FAERS Safety Report 8241237-3 (Version None)
Quarter: 2012Q1

REPORT INFORMATION
  Report Type: 
  Country: None (occurrence: None)
  Receive Date: 20120328
  Receipt Date: 20120323
  Transmission Date: 20120608
  Serious: Yes (Hospitalization)
  Sender: FDA-Public Use
  Company Number: IT-PFIZER INC-2012076868

PATIENT
  Age: 77 Year
  Sex: Male

DRUGS (11)
  1. TRINIPLAS [Concomitant]
  2. OXIVENT [Concomitant]
  3. ZITHROMAX [Suspect]
     Indication: BRONCHITIS
     Dosage: 500 MG DAILY
     Route: 048
     Dates: start: 20091215, end: 20091221
  4. ALBUTEROL SULFATE [Concomitant]
  5. NEXIUM [Concomitant]
  6. LASIX [Concomitant]
  7. URACTONE [Concomitant]
  8. TRAZODONE HCL [Concomitant]
  9. BECLOMETHASONE DIPROPIONATE [Concomitant]
  10. WARFARIN SODIUM [Suspect]
     Indication: PULMONARY EMBOLISM
     Dosage: 1 UNIT DOSE AS NEEDED
     Route: 048
     Dates: start: 20080101, end: 20091221
  11. PREDNISONE TAB [Concomitant]

REACTIONS (1)
  - HYPOCOAGULABLE STATE [None]
